FAERS Safety Report 24974949 (Version 1)
Quarter: 2025Q1

REPORT INFORMATION
  Report Type: Spontaneous
  Country: US (occurrence: US)
  Receive Date: 20250217
  Receipt Date: 20250217
  Transmission Date: 20250409
  Serious: No
  Sender: ROCHE
  Company Number: US-ROCHE-10000204009

PATIENT
  Sex: Male

DRUGS (9)
  1. ACTEMRA ACTPEN [Suspect]
     Active Substance: TOCILIZUMAB
     Indication: Liver function test abnormal
     Route: 058
  2. ATORVASTATIN [Concomitant]
     Active Substance: ATORVASTATIN
  3. FOLIC ACID POW [Concomitant]
  4. GABAPENTIN [Concomitant]
     Active Substance: GABAPENTIN
  5. MELOXICAM [Concomitant]
     Active Substance: MELOXICAM
  6. METHOTREXATE [Concomitant]
     Active Substance: METHOTREXATE
  7. PIOGLITAZONE [Concomitant]
     Active Substance: PIOGLITAZONE
  8. PREDNISONE [Concomitant]
     Active Substance: PREDNISONE
  9. SODIUM BICAR [Concomitant]

REACTIONS (6)
  - Hypoacusis [Unknown]
  - Balance disorder [Unknown]
  - Gait disturbance [Unknown]
  - Memory impairment [Unknown]
  - Depression [Unknown]
  - Swelling [Unknown]
